FAERS Safety Report 7307235-9 (Version None)
Quarter: 2011Q1

REPORT INFORMATION
  Report Type: 
  Country: None (occurrence: None)
  Receive Date: 20110223
  Receipt Date: 20110217
  Transmission Date: 20110831
  Serious: No
  Sender: FDA-Public Use
  Company Number: US-PFIZER INC-2011035841

PATIENT
  Sex: Female
  Weight: 96.145 kg

DRUGS (2)
  1. ADVIL [Suspect]
     Indication: PAIN
     Dosage: 400 MG, EVERY FIVE HOURS
     Route: 048
     Dates: start: 20110201
  2. MULTI-VITAMINS [Concomitant]
     Dosage: UNK, DAILY

REACTIONS (1)
  - FLATULENCE [None]
